FAERS Safety Report 5227899-3 (Version None)
Quarter: 2007Q1

REPORT INFORMATION
  Report Type: 
  Country: None (occurrence: None)
  Receive Date: 20070202
  Receipt Date: 20070124
  Transmission Date: 20070707
  Serious: Yes (Other)
  Sender: FDA-Public Use
  Company Number: GB-PFIZER INC-2006131232

PATIENT
  Age: 62 Year
  Sex: Male

DRUGS (3)
  1. IRINOTECAN HYDROCHLORIDE SOLUTION, STERILE [Suspect]
     Indication: GASTROINTESTINAL CARCINOMA
     Route: 042
  2. PREDNISOLONE [Suspect]
     Indication: POLYMYOSITIS
     Route: 048
  3. ATROPINE SULFATE [Suspect]
     Indication: ANTICHOLINERGIC SYNDROME
     Route: 042

REACTIONS (2)
  - MONOPARESIS [None]
  - MUSCULAR WEAKNESS [None]
